FAERS Safety Report 15277305 (Version 1)
Quarter: 2018Q3

REPORT INFORMATION
  Report Type: Report from Study
  Country: IL (occurrence: IL)
  Receive Date: 20180814
  Receipt Date: 20180814
  Transmission Date: 20181010
  Serious: Yes (Hospitalization, Other)
  Sender: FDA-Public Use
  Company Number: IL-SA-2018SA139692

PATIENT
  Age: 87 Year
  Sex: Male

DRUGS (2)
  1. TOUJEO [Suspect]
     Active Substance: INSULIN GLARGINE
     Dosage: UNK UNK, QD
     Route: 058
  2. LIXISENATIDE [Suspect]
     Active Substance: LIXISENATIDE

REACTIONS (3)
  - Pelvic fracture [Recovering/Resolving]
  - Fall [Unknown]
  - Hypoglycaemia [Not Recovered/Not Resolved]
